FAERS Safety Report 15575646 (Version 1)
Quarter: 2018Q4

REPORT INFORMATION
  Report Type: Spontaneous
  Country: US (occurrence: US)
  Receive Date: 20181101
  Receipt Date: 20181101
  Transmission Date: 20190205
  Serious: Yes (Other)
  Sender: FDA-Public Use
  Company Number: US-FRESENIUS KABI-FK201811389

PATIENT
  Age: 25 Month
  Sex: Female

DRUGS (6)
  1. ETOPOSIDE (MANUFACTURER UNKNOWN) [Suspect]
     Active Substance: ETOPOSIDE
     Indication: CONGENITAL TERATOMA
     Dosage: DAYS 4 TO 2
     Route: 065
  2. CARBOPLATIN (MANUFACTURER UNKNOWN) [Suspect]
     Active Substance: CARBOPLATIN
     Indication: CONGENITAL TERATOMA
     Dosage: DAYS 4 TO 2
     Route: 065
  3. ETOPOSIDE (MANUFACTURER UNKNOWN) [Suspect]
     Active Substance: ETOPOSIDE
     Indication: METASTASES TO LIVER
  4. ETOPOSIDE (MANUFACTURER UNKNOWN) [Suspect]
     Active Substance: ETOPOSIDE
     Indication: METASTASES TO LUNG
  5. CARBOPLATIN (MANUFACTURER UNKNOWN) [Suspect]
     Active Substance: CARBOPLATIN
     Indication: METASTASES TO LIVER
  6. CARBOPLATIN (MANUFACTURER UNKNOWN) [Suspect]
     Active Substance: CARBOPLATIN
     Indication: METASTASES TO LUNG

REACTIONS (6)
  - Neutropenia [Recovered/Resolved]
  - Anaemia [Recovered/Resolved]
  - Thrombocytopenia [Recovered/Resolved]
  - Pyrexia [Recovered/Resolved]
  - Mucosal inflammation [Recovered/Resolved]
  - Deafness [Not Recovered/Not Resolved]
